FAERS Safety Report 18312041 (Version 1)
Quarter: 2020Q3

REPORT INFORMATION
  Report Type: Spontaneous
  Country: US (occurrence: US)
  Receive Date: 20200924
  Receipt Date: 20200924
  Transmission Date: 20201103
  Serious: Yes (Life-Threatening)
  Sender: FDA-Public Use
  Company Number: None

PATIENT
  Age: 54 Year
  Sex: Female

DRUGS (1)
  1. PACLITAXEL (PACLITAXEL , 300MG/50ML INJ, VIL, 50ML) [Suspect]
     Active Substance: PACLITAXEL
     Indication: OVARIAN CANCER
     Route: 042
     Dates: start: 20200609, end: 20200629

REACTIONS (10)
  - Dyspnoea [None]
  - Infusion related reaction [None]
  - Blood pressure increased [None]
  - Tachypnoea [None]
  - Flushing [None]
  - Myalgia [None]
  - Back pain [None]
  - Angioedema [None]
  - Tachycardia [None]
  - Pain [None]

NARRATIVE: CASE EVENT DATE: 20200629
